FAERS Safety Report 10366365 (Version 1)
Quarter: 2014Q3

REPORT INFORMATION
  Report Type: Spontaneous
  Country: GB (occurrence: GB)
  Receive Date: 20140806
  Receipt Date: 20140806
  Transmission Date: 20150326
  Serious: Yes (Death)
  Sender: FDA-Public Use
  Company Number: GB-MUNDIPHARMA DS AND PHARMACOVIGILANCE-GBR-2014-0019802

PATIENT
  Age: 32 Year
  Sex: Female

DRUGS (2)
  1. OXYCODONE HYDROCHLORIDE. [Suspect]
     Active Substance: OXYCODONE HYDROCHLORIDE
     Indication: PAIN
     Route: 065
  2. AMITRIPTYLINE [Suspect]
     Active Substance: AMITRIPTYLINE
     Indication: PAIN
     Route: 065

REACTIONS (1)
  - Death [Fatal]
